FAERS Safety Report 12374194 (Version 1)
Quarter: 2016Q2

REPORT INFORMATION
  Report Type: Spontaneous
  Country: US (occurrence: US)
  Receive Date: 20160517
  Receipt Date: 20160517
  Transmission Date: 20160815
  Serious: No
  Sender: FDA-Public Use
  Company Number: US-ASTRAZENECA-2016SE49463

PATIENT
  Sex: Male
  Weight: 101.6 kg

DRUGS (18)
  1. FISH OIL [Concomitant]
     Active Substance: FISH OIL
  2. ZETIA [Concomitant]
     Active Substance: EZETIMIBE
  3. BYDUREON [Suspect]
     Active Substance: EXENATIDE
     Indication: TYPE 2 DIABETES MELLITUS
     Route: 058
     Dates: start: 2016
  4. DROTAVERINE [Concomitant]
     Active Substance: DROTAVERINE
  5. TANDEM PLUS [Concomitant]
     Active Substance: CALCIUM PANTOTHENATE\CUPRIC SULFATE\CYANOCOBALAMIN\FERROUS ASPARTO GLYCINATE\FERROUS FUMARATE\FOLIC ACID\MAGNESIUM SULFATE\NIACINAMIDE\PYRIDOXINE HYDROCHLORIDE\RIBOFLAVIN\SODIUM ASCORBATE\THIAMINE MONONITRATE\ZINC SULFATE
     Dosage: EVERY OTHER DAY
  6. MULTIVITAMIN [Concomitant]
     Active Substance: VITAMINS
     Dosage: DAILY
  7. CELEBREX [Concomitant]
     Active Substance: CELECOXIB
  8. VITAMIN D [Concomitant]
     Active Substance: CHOLECALCIFEROL
  9. GARLIC. [Concomitant]
     Active Substance: GARLIC
  10. CINNAMON. [Concomitant]
     Active Substance: CINNAMON
  11. NEXIUM [Suspect]
     Active Substance: ESOMEPRAZOLE MAGNESIUM
     Indication: HIATUS HERNIA
     Route: 048
     Dates: start: 1995
  12. ASPIRIN. [Concomitant]
     Active Substance: ASPIRIN
  13. LOSARTAN. [Concomitant]
     Active Substance: LOSARTAN
  14. CEREFOLIN [Concomitant]
     Active Substance: CYANOCOBALAMIN CO-57\LEVOMEFOLATE CALCIUM\PYRIDOXINE HYDROCHLORIDE\RIBOFLAVIN
  15. METAMUCIL [Concomitant]
     Active Substance: PLANTAGO SEED
     Dosage: EVERY OTHER DAY
  16. NEXIUM [Suspect]
     Active Substance: ESOMEPRAZOLE MAGNESIUM
     Indication: GASTROOESOPHAGEAL REFLUX DISEASE
     Route: 048
     Dates: start: 1995
  17. METFORMIN [Concomitant]
     Active Substance: METFORMIN HYDROCHLORIDE
  18. ZOCOR [Concomitant]
     Active Substance: SIMVASTATIN

REACTIONS (5)
  - Product use issue [Unknown]
  - Injection site mass [Unknown]
  - Off label use [Unknown]
  - Injection site haemorrhage [Unknown]
  - Injection site pruritus [Unknown]
